FAERS Safety Report 4325628-9 (Version None)
Quarter: 2004Q1

REPORT INFORMATION
  Report Type: 
  Country: None (occurrence: None)
  Receive Date: 20040324
  Receipt Date: 20040312
  Transmission Date: 20041129
  Serious: Yes (Other)
  Sender: FDA-Public Use
  Company Number: DE-JNJFOC-20040301730

PATIENT
  Age: 38 Year
  Sex: Male
  Weight: 76 kg

DRUGS (1)
  1. RISPERDAL [Suspect]
     Indication: SCHIZOPHRENIA
     Dosage: 4 MG,  IN 1 DAY, ORAL
     Route: 048
     Dates: start: 19970101

REACTIONS (1)
  - LEUKOPENIA [None]
